FAERS Safety Report 6302386-X (Version None)
Quarter: 2009Q3

REPORT INFORMATION
  Report Type: 
  Country: None (occurrence: None)
  Receive Date: 20090810
  Receipt Date: 20090804
  Transmission Date: 20100115
  Serious: Yes (Death)
  Sender: FDA-Public Use
  Company Number: PHEH2009US06772

PATIENT
  Sex: Female

DRUGS (8)
  1. GLEEVEC [Suspect]
     Indication: MYELODYSPLASTIC SYNDROME
     Dosage: 400 MG, QD
     Route: 048
     Dates: start: 20080911
  2. COZAAR [Concomitant]
  3. DIGOXIN [Concomitant]
  4. COLDRICINE [Concomitant]
  5. FUROSEMIDE [Concomitant]
  6. WARFARIN [Concomitant]
  7. TOPROL-XL [Concomitant]
  8. NITROGLYCERIN [Concomitant]

REACTIONS (3)
  - DEATH [None]
  - HAEMATOCRIT DECREASED [None]
  - HAEMOGLOBIN DECREASED [None]
